FAERS Safety Report 14213252 (Version 6)
Quarter: 2018Q2

REPORT INFORMATION
  Report Type: Spontaneous
  Country: US (occurrence: US)
  Receive Date: 20171122
  Receipt Date: 20180521
  Transmission Date: 20180711
  Serious: Yes (Disabling, Other)
  Sender: FDA-Public Use
  Company Number: US-PFIZER INC-2017496724

PATIENT
  Age: 48 Year
  Sex: Male

DRUGS (9)
  1. BETAMETHASONE ACETATE/BETAMETHASONE SODIUM PHOSPHATE [Suspect]
     Active Substance: BETAMETHASONE ACETATE\BETAMETHASONE SODIUM PHOSPHATE
     Indication: NEURITIS
     Dosage: 0.5 ML, UNK
     Route: 014
     Dates: start: 20170901, end: 20170901
  2. TESTOSTERONE CIPIONATE [Concomitant]
     Active Substance: TESTOSTERONE
     Dosage: 200 MG/ML, UNK
  3. BETAMETHASONE ACETATE [Suspect]
     Active Substance: BETAMETHASONE ACETATE
     Dosage: UNK, 1 INJECTION
     Dates: start: 20170901, end: 20170901
  4. LIDOCAINE HCL [Suspect]
     Active Substance: LIDOCAINE HYDROCHLORIDE
     Indication: NEURITIS
     Dosage: 1 ML,  (1 INJECTION)
     Route: 058
     Dates: start: 20170901, end: 20170901
  5. MEPIVACAINE HCL [Suspect]
     Active Substance: MEPIVACAINE\MEPIVACAINE HYDROCHLORIDE
     Indication: NEURITIS
     Dosage: UNK
  6. BETAMETHASONE ACETATE/BETAMETHASONE SODIUM PHOSPHATE [Suspect]
     Active Substance: BETAMETHASONE ACETATE\BETAMETHASONE SODIUM PHOSPHATE
     Dosage: 6 MG/ML, UNK
     Route: 014
  7. SYNTHROID [Concomitant]
     Active Substance: LEVOTHYROXINE SODIUM
     Dosage: 200 UG, UNK
  8. CORTISONE ACETATE. [Suspect]
     Active Substance: CORTISONE ACETATE
     Dosage: UNK
  9. ATORVASTATIN [Concomitant]
     Active Substance: ATORVASTATIN
     Dosage: 20 MG, UNK

REACTIONS (6)
  - Mycobacterium chelonae infection [Recovering/Resolving]
  - Off label use [Unknown]
  - Abscess limb [Recovering/Resolving]
  - Inflammation [Recovering/Resolving]
  - Scar [Recovering/Resolving]
  - Dermal cyst [Recovering/Resolving]

NARRATIVE: CASE EVENT DATE: 2017
